FAERS Safety Report 9850562 (Version 1)
Quarter: 2013Q4

REPORT INFORMATION
  Report Type: Spontaneous
  Country: US (occurrence: None)
  Receive Date: 20131226
  Receipt Date: 20131226
  Transmission Date: 20140711
  Serious: Yes (Other)
  Sender: FDA-Public Use
  Company Number: PHEH2013US004932

PATIENT
  Age: 84 Year
  Sex: Female
  Weight: 55.3 kg

DRUGS (7)
  1. VALSARTAN + HCT [Suspect]
     Indication: HYPERTENSION
     Route: 048
     Dates: start: 201302, end: 201302
  2. HYDROCHLOROTHIAZIDE W/VALSARTAN [Suspect]
     Indication: HYPERTENSION
     Route: 048
     Dates: start: 201302, end: 201302
  3. DIOVAN HCT (VALSARTAN, HYDROCHLOROTHIAZIDE) UNKNOWN [Suspect]
  4. DIOVAN [Suspect]
     Indication: HYPERTENSION
     Route: 048
     Dates: start: 20120803
  5. VALSARTAN MYLAN (VALSARTAN) [Concomitant]
  6. MULTI-VIT (VITAMINS NOS) TABLET [Concomitant]
  7. FELODIPINE (FELODIPINE) [Concomitant]

REACTIONS (4)
  - Hypertension [None]
  - Malaise [None]
  - Dizziness [None]
  - Headache [None]
